FAERS Safety Report 9189037 (Version 2)
Quarter: 2013Q1

REPORT INFORMATION
  Report Type: Spontaneous
  Country: US (occurrence: US)
  Receive Date: 20130326
  Receipt Date: 20130328
  Transmission Date: 20140127
  Serious: No
  Sender: FDA-Public Use
  Company Number: US-BIOGENIDEC-2013BI026113

PATIENT
  Sex: Female

DRUGS (1)
  1. AVONEX [Suspect]
     Indication: MULTIPLE SCLEROSIS
     Route: 030
     Dates: start: 1997, end: 201207

REACTIONS (4)
  - Loss of control of legs [Recovered/Resolved]
  - Gait disturbance [Recovered/Resolved]
  - Visual impairment [Not Recovered/Not Resolved]
  - Paralysis [Not Recovered/Not Resolved]
